FAERS Safety Report 5501630-6 (Version None)
Quarter: 2007Q4

REPORT INFORMATION
  Report Type: 
  Country: None (occurrence: None)
  Receive Date: 20071026
  Receipt Date: 20071026
  Transmission Date: 20080405
  Serious: Yes (Life-Threatening, Hospitalization)
  Sender: FDA-Public Use
  Company Number: None

PATIENT
  Age: 29 Year
  Sex: Male
  Weight: 126.6 kg

DRUGS (4)
  1. ALDESLEUKIN UNKNOWN UNKNOWN [Suspect]
     Indication: METASTATIC MALIGNANT MELANOMA
     Dosage: 91.2 MILLION UNITS EVERY 8 HOURS IV BOLUS
     Route: 040
     Dates: start: 20061205, end: 20061207
  2. MAXZIDE [Concomitant]
  3. NORVASC [Concomitant]
  4. TOPROL-XL [Concomitant]

REACTIONS (2)
  - LUNG INFILTRATION [None]
  - RESPIRATORY DISORDER [None]
